FAERS Safety Report 11512916 (Version 1)
Quarter: 2015Q3

REPORT INFORMATION
  Report Type: Spontaneous
  Country: US (occurrence: US)
  Receive Date: 20150903
  Receipt Date: 20150903
  Transmission Date: 20151125
  Serious: No
  Sender: FDA-Public Use
  Company Number: US-ELI_LILLY_AND_COMPANY-US201004008146

PATIENT
  Age: 77 Year
  Sex: Female

DRUGS (7)
  1. HUMALOG [Suspect]
     Active Substance: INSULIN LISPRO
     Indication: DIABETES MELLITUS
     Dosage: 12 U, EACH MORNING
  2. HUMALOG [Suspect]
     Active Substance: INSULIN LISPRO
     Dosage: 14 U, OTHER
  3. HUMALOG [Suspect]
     Active Substance: INSULIN LISPRO
     Dosage: 17 U, EACH EVENING
  4. LANTUS [Concomitant]
     Active Substance: INSULIN GLARGINE
  5. HUMALOG [Suspect]
     Active Substance: INSULIN LISPRO
     Dosage: UNK, UNK
     Dates: start: 20100427, end: 20100427
  6. HUMALOG [Suspect]
     Active Substance: INSULIN LISPRO
     Dates: start: 20100427, end: 20100427
  7. HUMALOG [Suspect]
     Active Substance: INSULIN LISPRO
     Dates: start: 20100428, end: 20100428

REACTIONS (4)
  - Blood glucose increased [Unknown]
  - Incorrect drug dosage form administered [Unknown]
  - Injection site extravasation [Unknown]
  - Drug dispensing error [Unknown]

NARRATIVE: CASE EVENT DATE: 201004
